FAERS Safety Report 23936253 (Version 1)
Quarter: 2024Q2

REPORT INFORMATION
  Report Type: Other
  Country: PL (occurrence: None)
  Receive Date: 20240604
  Receipt Date: 20240604
  Transmission Date: 20240716
  Serious: Yes (Life-Threatening, Hospitalization, Other)
  Sender: FDA-Public Use
  Company Number: PL-ROCHE-3574131

PATIENT
  Age: 53 Year
  Sex: Male

DRUGS (3)
  1. MYCOPHENOLATE MOFETIL [Suspect]
     Active Substance: MYCOPHENOLATE MOFETIL
     Indication: Prophylaxis against transplant rejection
     Route: 065
  2. PREDNISONE [Suspect]
     Active Substance: PREDNISONE
     Indication: Prophylaxis against transplant rejection
     Route: 065
  3. TACROLIMUS [Suspect]
     Active Substance: TACROLIMUS
     Indication: Prophylaxis against transplant rejection
     Dosage: 5 NG/ML
     Route: 065

REACTIONS (6)
  - Pneumocystis jirovecii pneumonia [Recovered/Resolved]
  - Pneumonia [Recovered/Resolved]
  - Interstitial lung disease [Recovered/Resolved]
  - Acute kidney injury [Unknown]
  - Pneumothorax [Recovered/Resolved]
  - Cytomegalovirus infection [Recovered/Resolved]

NARRATIVE: CASE EVENT DATE: 20200301
